FAERS Safety Report 5926204-4 (Version None)
Quarter: 2008Q4

REPORT INFORMATION
  Report Type: 
  Country: None (occurrence: None)
  Receive Date: 20081017
  Receipt Date: 20081014
  Transmission Date: 20090506
  Serious: Yes (Other)
  Sender: FDA-Public Use
  Company Number: 08H-163-031406-00

PATIENT
  Age: 33 Year
  Sex: Female
  Weight: 60 kg

DRUGS (7)
  1. AMIDATE [Suspect]
     Indication: INDUCTION OF ANAESTHESIA
     Dosage: SEE IMAGE
     Route: 040
  2. PENTOBARBITAL CAP [Suspect]
     Indication: SEDATIVE THERAPY
     Dosage: 60 MG, EVERY HOUR, INFUSION
  3. DEXAMETHASONE TAB [Suspect]
     Indication: DRUG USE FOR UNKNOWN INDICATION
     Dosage: 20 MG, EVERY 12 HOURS, INTRAVENOUS
     Route: 042
  4. PHENYTOIN SODIUM [Suspect]
     Indication: DRUG USE FOR UNKNOWN INDICATION
     Dosage: 100 MG, EVERY 8 HOURS, INTRAVENOUS
     Route: 042
  5. MANNITOL [Concomitant]
  6. DOPAMINE HCL [Concomitant]
  7. PHENYLEPHRINE (PHENYLEPHRINE) [Concomitant]

REACTIONS (5)
  - HYPERGLYCAEMIA [None]
  - HYPEROSMOLAR STATE [None]
  - LOSS OF CONSCIOUSNESS [None]
  - METABOLIC ACIDOSIS [None]
  - SUBARACHNOID HAEMORRHAGE [None]
